FAERS Safety Report 10535172 (Version 2)
Quarter: 2016Q3

REPORT INFORMATION
  Report Type: Spontaneous
  Country: CA (occurrence: CA)
  Receive Date: 20141022
  Receipt Date: 20160728
  Transmission Date: 20161109
  Serious: Yes (Hospitalization)
  Sender: FDA-Public Use
  Company Number: PHHY2014CA134335

PATIENT
  Age: 79 Year
  Sex: Female

DRUGS (1)
  1. GALANTAMINE. [Suspect]
     Active Substance: GALANTAMINE
     Indication: DEMENTIA
     Dosage: 8 MG, QD
     Route: 065

REACTIONS (8)
  - Insomnia [Recovered/Resolved]
  - Inappropriate affect [Recovered/Resolved]
  - Distractibility [Recovered/Resolved]
  - Hypersexuality [Recovered/Resolved]
  - Pressure of speech [Recovered/Resolved]
  - Mania [Recovered/Resolved]
  - Psychomotor hyperactivity [Recovered/Resolved]
  - Abnormal behaviour [Recovered/Resolved]
